FAERS Safety Report 5496311-1 (Version None)
Quarter: 2007Q4

REPORT INFORMATION
  Report Type: 
  Country: None (occurrence: None)
  Receive Date: 20071025
  Receipt Date: 20070323
  Transmission Date: 20080405
  Serious: No
  Sender: FDA-Public Use
  Company Number: A0644385A

PATIENT
  Age: 50 Year
  Sex: Female

DRUGS (6)
  1. ADVAIR DISKUS 100/50 [Suspect]
     Indication: ASTHMA
     Dosage: 1PUFF TWICE PER DAY
     Route: 055
     Dates: end: 20070320
  2. VITAMINS [Concomitant]
  3. DIOVAN HCT [Concomitant]
  4. MICROGESTIN 1.5/30 [Concomitant]
  5. TYLENOL (CAPLET) [Concomitant]
  6. LORATADINE [Concomitant]

REACTIONS (1)
  - RASH [None]
